FAERS Safety Report 8415948-0 (Version None)
Quarter: 2012Q2

REPORT INFORMATION
  Report Type: 
  Country: None (occurrence: None)
  Receive Date: 20120323
  Receipt Date: 20111221
  Transmission Date: 20120825
  Serious: Yes (Other)
  Sender: FDA-Public Use
  Company Number: 163-21880-11122832

PATIENT
  Age: 69 Year
  Sex: Male
  Weight: 95.71 kg

DRUGS (1)
  1. REVLIMID [Suspect]
     Indication: MULTIPLE MYELOMA
     Dosage: 25 MG, QD, PO
     Route: 048
     Dates: start: 20110818, end: 20111221

REACTIONS (2)
  - BLOOD COUNT ABNORMAL [None]
  - OEDEMA PERIPHERAL [None]
